FAERS Safety Report 7826424-8 (Version None)
Quarter: 2011Q4

REPORT INFORMATION
  Report Type: 
  Country: None (occurrence: None)
  Receive Date: 20111020
  Receipt Date: 20111011
  Transmission Date: 20120403
  Serious: No
  Sender: FDA-Public Use
  Company Number: US-BIOGENIDEC-2011BI038921

PATIENT
  Sex: Female

DRUGS (1)
  1. AVONEX [Suspect]
     Indication: MULTIPLE SCLEROSIS
     Route: 030
     Dates: start: 20091112, end: 20091224

REACTIONS (9)
  - LOSS OF CONSCIOUSNESS [None]
  - VOMITING [None]
  - CARPAL TUNNEL SYNDROME [None]
  - BLADDER DISORDER [None]
  - JOINT SWELLING [None]
  - PAIN [None]
  - FALL [None]
  - DEHYDRATION [None]
  - MULTIPLE SCLEROSIS [None]
